FAERS Safety Report 4458168-7 (Version None)
Quarter: 2004Q3

REPORT INFORMATION
  Report Type: 
  Country: None (occurrence: None)
  Receive Date: 20040924
  Receipt Date: 20040914
  Transmission Date: 20050211
  Serious: Yes (Disabling)
  Sender: FDA-Public Use
  Company Number: US-ABBOTT-04P-163-0273314-00

PATIENT
  Sex: Female

DRUGS (13)
  1. HUMIRA [Suspect]
     Indication: RHEUMATOID ARTHRITIS
     Route: 058
     Dates: start: 20040801, end: 20040901
  2. FLUOXETINE HCL [Concomitant]
     Indication: HEADACHE
     Route: 048
  3. FLUOXETINE HCL [Concomitant]
     Indication: DEPRESSED LEVEL OF CONSCIOUSNESS
  4. METHOTREXATE SODIUM [Concomitant]
     Indication: RHEUMATOID ARTHRITIS
     Route: 058
  5. PREDNISONE [Concomitant]
     Indication: RHEUMATOID ARTHRITIS
     Route: 048
  6. BUCINDOLOL HYDROCHLORIDE [Concomitant]
     Indication: RHEUMATOID ARTHRITIS
     Route: 048
     Dates: start: 20040801
  7. ESOMEPRAZOLE [Concomitant]
     Indication: GASTRIC DISORDER
     Route: 048
  8. PRIMIDONE [Concomitant]
     Indication: TREMOR
     Route: 048
  9. TRIAMTERENE [Concomitant]
     Indication: BLOOD PRESSURE INCREASED
     Route: 048
     Dates: start: 20040801
  10. ATORVASTATIN CALCIUM [Concomitant]
     Indication: BLOOD CHOLESTEROL
     Route: 048
     Dates: start: 20040801
  11. FOLIC ACID [Concomitant]
     Indication: RHEUMATOID ARTHRITIS
     Route: 048
     Dates: start: 20040801
  12. RISEDRONATE SODIUM [Concomitant]
     Indication: OSTEOPOROSIS
     Route: 048
     Dates: start: 20030101
  13. HYDROCODONE [Concomitant]
     Indication: PAIN
     Route: 048
     Dates: start: 20040801

REACTIONS (6)
  - ABDOMINAL PAIN LOWER [None]
  - FALL [None]
  - INJECTION SITE STINGING [None]
  - INTERVERTEBRAL DISC DEGENERATION [None]
  - NERVE COMPRESSION [None]
  - WEIGHT INCREASED [None]
